FAERS Safety Report 5203413-3 (Version None)
Quarter: 2007Q1

REPORT INFORMATION
  Report Type: 
  Country: None (occurrence: None)
  Receive Date: 20070110
  Receipt Date: 20070104
  Transmission Date: 20070707
  Serious: Yes (Hospitalization)
  Sender: FDA-Public Use
  Company Number: GB-AMGEN-UK201609

PATIENT
  Sex: Female
  Weight: 8.7 kg

DRUGS (14)
  1. MIMPARA [Suspect]
     Indication: HYPERPARATHYROIDISM SECONDARY
     Route: 048
     Dates: start: 20060904, end: 20061017
  2. FOLIC ACID [Concomitant]
     Route: 048
  3. NEORECORMON [Concomitant]
     Route: 065
  4. ASCORBIC ACID [Concomitant]
     Route: 065
  5. CALCIUM ACETATE [Concomitant]
     Route: 065
  6. VITAMIN D [Concomitant]
     Route: 065
  7. AMLODIPINE [Concomitant]
     Route: 048
     Dates: end: 20060926
  8. ONDANSETRON [Concomitant]
     Route: 048
  9. OMEPRAZOLE [Concomitant]
     Route: 048
  10. CHOLECALCIFEROL [Concomitant]
     Route: 048
  11. CALCIUM CARBONATE [Concomitant]
     Route: 048
  12. SYTRON [Concomitant]
     Route: 048
  13. ALFACALCIDOL [Concomitant]
     Route: 033
  14. EPOGEN [Concomitant]
     Route: 058

REACTIONS (1)
  - HYPOTENSION [None]
